FAERS Safety Report 21200883 (Version 1)
Quarter: 2022Q3

REPORT INFORMATION
  Report Type: Spontaneous
  Country: US (occurrence: US)
  Receive Date: 20220811
  Receipt Date: 20220811
  Transmission Date: 20221027
  Serious: Yes (Death, Life-Threatening, Hospitalization, Other)
  Sender: FDA-Public Use
  Company Number: US-PFIZER INC-202201051515

PATIENT
  Age: 82 Year
  Sex: Female
  Weight: 52 kg

DRUGS (1)
  1. INLYTA [Suspect]
     Active Substance: AXITINIB
     Indication: Thyroid cancer
     Dosage: 5 MG, 2X/DAY
     Route: 048
     Dates: start: 20220623

REACTIONS (2)
  - Hypoxia [Fatal]
  - Pneumonia [Fatal]

NARRATIVE: CASE EVENT DATE: 20220720
